FAERS Safety Report 5684203-4 (Version None)
Quarter: 2008Q1

REPORT INFORMATION
  Report Type: 
  Country: None (occurrence: None)
  Receive Date: 20080327
  Receipt Date: 20080327
  Transmission Date: 20080703
  Serious: Yes (Life-Threatening)
  Sender: FDA-Public Use
  Company Number: None

PATIENT
  Age: 80 Year
  Sex: Female
  Weight: 68.0396 kg

DRUGS (2)
  1. NEXAVAR [Suspect]
     Indication: RENAL CELL CARCINOMA
     Dates: start: 20071220, end: 20071230
  2. OTHER MEDICATIONS [Concomitant]

REACTIONS (2)
  - ASTHENIA [None]
  - DRUG HYPERSENSITIVITY [None]
